FAERS Safety Report 5876501-6 (Version None)
Quarter: 2008Q3

REPORT INFORMATION
  Report Type: 
  Country: None (occurrence: None)
  Receive Date: 20080910
  Receipt Date: 20080903
  Transmission Date: 20090109
  Serious: Yes (Hospitalization)
  Sender: FDA-Public Use
  Company Number: B0523544A

PATIENT
  Age: 17 Year
  Sex: Female

DRUGS (1)
  1. ZELITREX [Suspect]
     Dosage: 1TAB SEE DOSAGE TEXT
     Route: 048
     Dates: start: 20070101

REACTIONS (7)
  - CONDITION AGGRAVATED [None]
  - CORNEAL DISORDER [None]
  - CORNEAL OEDEMA [None]
  - DRUG ADMINISTRATION ERROR [None]
  - EYE PAIN [None]
  - FATIGUE [None]
  - KERATITIS HERPETIC [None]
